FAERS Safety Report 13667889 (Version 2)
Quarter: 2017Q4

REPORT INFORMATION
  Report Type: Spontaneous
  Country: PK (occurrence: PK)
  Receive Date: 20170620
  Receipt Date: 20171221
  Transmission Date: 20180320
  Serious: Yes (Life-Threatening, Hospitalization, Other)
  Sender: FDA-Public Use
  Company Number: PK-SUN PHARMACEUTICAL INDUSTRIES LTD-2017RR-143167

PATIENT
  Age: 30 Year
  Sex: Male

DRUGS (3)
  1. AMLODIPINE [Concomitant]
     Active Substance: AMLODIPINE BESYLATE
     Indication: HYPERTENSION
     Dosage: 5 MG, UNK
     Route: 065
  2. TRAMADOL. [Suspect]
     Active Substance: TRAMADOL
     Indication: ARTHRALGIA
     Dosage: 50 MG, UNK
     Route: 065
  3. BROMAZEPAM [Concomitant]
     Active Substance: BROMAZEPAM
     Indication: INSOMNIA
     Dosage: 3 MG, UNK
     Route: 065

REACTIONS (2)
  - Cerebral infarction [Recovering/Resolving]
  - Toxicity to various agents [Recovering/Resolving]
